FAERS Safety Report 7040050 (Version 2)
Quarter: 2012Q4

REPORT INFORMATION
  Report Type: Report from Study
  Country: US (occurrence: US)
  Receive Date: 20090702
  Receipt Date: 20121219
  Transmission Date: 20130627
  Serious: Yes (Hospitalization, Other)
  Sender: FDA-Public Use
  Company Number: US-ROCHE-621458

PATIENT
  Age: 61 Year
  Sex: Male
  Weight: 77.1 kg

DRUGS (6)
  1. CAPECITABINE [Suspect]
     Indication: COLON CANCER
     Dosage: FREQUENCY; 14 DAYS
     Route: 048
     Dates: start: 20070529, end: 20070718
  2. CAPECITABINE [Suspect]
     Dosage: FREQUENCY; 14 DAYS, DISCHARGE
     Route: 048
     Dates: start: 20070822, end: 20081117
  3. CAPECITABINE [Suspect]
     Dosage: 7 DAYS ON AND 7 DAYS OFF
     Route: 048
     Dates: start: 20081117, end: 20090316
  4. AVASTIN [Concomitant]
     Indication: COLON CANCER
     Route: 042
     Dates: start: 20070529, end: 20081006
  5. ZOFRAN [Concomitant]
     Indication: NAUSEA
     Route: 042
     Dates: start: 20070527, end: 20081006
  6. DECADRON [Concomitant]
     Indication: NAUSEA
     Route: 042
     Dates: start: 20070527, end: 20081006

REACTIONS (9)
  - Peptic ulcer [Unknown]
  - Disease progression [Unknown]
  - Enterovesical fistula [Unknown]
  - Malaise [Unknown]
  - Urine analysis abnormal [Unknown]
  - Upper respiratory tract congestion [Unknown]
  - Respiratory tract congestion [Unknown]
  - Gastric ulcer [Unknown]
  - Productive cough [Unknown]
